FAERS Safety Report 18489973 (Version 1)
Quarter: 2020Q4

REPORT INFORMATION
  Report Type: Spontaneous
  Country: US (occurrence: US)
  Receive Date: 20201111
  Receipt Date: 20201111
  Transmission Date: 20210114
  Serious: Yes (Death, Hospitalization, Other)
  Sender: FDA-Public Use
  Company Number: US-GILEAD-2019-0386605

PATIENT
  Age: 64 Year
  Sex: Male

DRUGS (4)
  1. DOLUTEGRAVIR [Suspect]
     Active Substance: DOLUTEGRAVIR
     Indication: HIV INFECTION
     Dosage: STANDARD DOSE STARTED ON HOSPITAL DAY 6
     Route: 065
  2. FLUCONAZOLE. [Concomitant]
     Active Substance: FLUCONAZOLE
     Indication: PROPHYLAXIS
  3. DESCOVY [Suspect]
     Active Substance: EMTRICITABINE\TENOFOVIR ALAFENAMIDE FUMARATE
     Indication: HIV INFECTION
     Dosage: STANDARD DOSE STARTED ON HOSPITAL DAY 6
     Route: 065
  4. OLANZAPINE. [Concomitant]
     Active Substance: OLANZAPINE

REACTIONS (5)
  - Tumour lysis syndrome [Fatal]
  - High-grade B-cell lymphoma [Fatal]
  - Hypercalcaemia [Fatal]
  - Mental status changes [Not Recovered/Not Resolved]
  - Immune reconstitution inflammatory syndrome [Fatal]
